FAERS Safety Report 5053980-8 (Version None)
Quarter: 2006Q3

REPORT INFORMATION
  Report Type: 
  Country: None (occurrence: None)
  Receive Date: 20060713
  Receipt Date: 20060705
  Transmission Date: 20061208
  Serious: Yes (Death, Hospitalization)
  Sender: FDA-Public Use
  Company Number: 200610612BFR

PATIENT
  Age: 59 Year
  Sex: Male

DRUGS (8)
  1. SORAFENIB [Suspect]
     Indication: RENAL CELL CARCINOMA STAGE UNSPECIFIED
     Dosage: ORAL
     Route: 048
  2. GLUCOPHAGE [Concomitant]
  3. BISOPROLOL FUMARATE [Concomitant]
  4. DIANTALVIC [Concomitant]
  5. DURAGESIC-100 [Concomitant]
  6. PRIMPERAN TAB [Concomitant]
  7. DIAMICRON [Concomitant]
  8. MORPHINE SULFATE [Concomitant]

REACTIONS (4)
  - ASTHENIA [None]
  - DISEASE PROGRESSION [None]
  - GENERAL PHYSICAL HEALTH DETERIORATION [None]
  - METASTATIC RENAL CELL CARCINOMA [None]
